FAERS Safety Report 9829068 (Version 1)
Quarter: 2014Q1

REPORT INFORMATION
  Report Type: Spontaneous
  Country: US (occurrence: US)
  Receive Date: 20140119
  Receipt Date: 20140119
  Transmission Date: 20141002
  Serious: Yes (Other)
  Sender: FDA-Public Use
  Company Number: US-ASTRAZENECA-2014SE01150

PATIENT
  Age: 72 Year
  Sex: Female
  Weight: 56.2 kg

DRUGS (22)
  1. NEXIUM [Suspect]
     Indication: GASTROOESOPHAGEAL REFLUX DISEASE
     Route: 048
  2. NEXIUM [Suspect]
     Indication: HERNIA
     Route: 048
  3. NEXIUM [Suspect]
     Indication: REGURGITATION
     Route: 048
  4. NEXIUM [Suspect]
     Indication: GASTROOESOPHAGEAL REFLUX DISEASE
     Route: 048
  5. NEXIUM [Suspect]
     Indication: HERNIA
     Route: 048
  6. NEXIUM [Suspect]
     Indication: REGURGITATION
     Route: 048
  7. CRESTOR [Suspect]
     Indication: BLOOD CHOLESTEROL INCREASED
     Route: 048
  8. TOPROL XL [Suspect]
     Indication: CARDIAC DISORDER
     Route: 048
     Dates: start: 2007
  9. ZYRTEC [Concomitant]
     Indication: MULTIPLE ALLERGIES
     Route: 048
     Dates: start: 2008
  10. B12 INJECTION [Concomitant]
     Indication: PERNICIOUS ANAEMIA
     Route: 050
  11. PREDNISONE [Concomitant]
     Indication: POLYMYALGIA RHEUMATICA
     Route: 048
     Dates: start: 2008
  12. ASPIRIN [Concomitant]
     Indication: STENT PLACEMENT
     Route: 048
     Dates: start: 2007
  13. SYNTHROID [Concomitant]
     Indication: HYPOTHYROIDISM
     Dosage: 100 MCG DAILY
     Route: 048
     Dates: start: 1994
  14. NITROGLYCERIN [Concomitant]
     Indication: CHEST PAIN
     Dates: start: 2007
  15. NEURONTIN [Concomitant]
     Indication: NEURALGIA
     Route: 048
     Dates: start: 2009
  16. DILTIAZEM [Concomitant]
     Indication: BLOOD PRESSURE
     Route: 048
     Dates: start: 2007
  17. ZETIA [Concomitant]
     Indication: BLOOD CHOLESTEROL
     Route: 048
     Dates: start: 2009
  18. IMDUR  EXTENDED RELEASE [Concomitant]
     Indication: CHEST PAIN
     Route: 048
     Dates: start: 2007
  19. LASIX [Concomitant]
     Indication: FLUID RETENTION
     Route: 048
     Dates: start: 2008
  20. PLAVIX [Concomitant]
     Indication: STENT PLACEMENT
     Route: 048
     Dates: start: 2007
  21. PROZAC [Concomitant]
     Indication: DEPRESSION
     Route: 048
     Dates: start: 2004
  22. VITAMIN D [Concomitant]
     Indication: VITAMIN D DECREASED
     Route: 048

REACTIONS (28)
  - Pericardial effusion [Unknown]
  - Mitral valve incompetence [Unknown]
  - Vascular occlusion [Unknown]
  - Coronary artery disease [Unknown]
  - Tricuspid valve incompetence [Unknown]
  - Aortic valve incompetence [Unknown]
  - Pulmonary hypertension [Unknown]
  - Peripheral vascular disorder [Unknown]
  - Intermittent claudication [Unknown]
  - Hypertension [Unknown]
  - Dysphonia [Unknown]
  - Chills [Unknown]
  - Pain in extremity [Unknown]
  - Oropharyngeal pain [Unknown]
  - Pyrexia [Unknown]
  - Dyspepsia [Unknown]
  - Hyperchlorhydria [Unknown]
  - Abdominal discomfort [Unknown]
  - Fluid retention [Unknown]
  - Memory impairment [Unknown]
  - Headache [Unknown]
  - Hyperlipidaemia [Unknown]
  - Palpitations [Unknown]
  - Cough [Unknown]
  - Influenza [Unknown]
  - Vitamin D decreased [Unknown]
  - Malaise [Unknown]
  - Intentional drug misuse [Unknown]
